FAERS Safety Report 8113506-9 (Version None)
Quarter: 2012Q1

REPORT INFORMATION
  Report Type: 
  Country: None (occurrence: None)
  Receive Date: 20120203
  Receipt Date: 20120131
  Transmission Date: 20120608
  Serious: Yes (Other)
  Sender: FDA-Public Use
  Company Number: US-PFIZER INC-2012026724

PATIENT
  Sex: Male

DRUGS (1)
  1. CHANTIX [Suspect]
     Indication: SMOKING CESSATION THERAPY
     Dosage: UNK
     Dates: start: 20080310, end: 20080322

REACTIONS (4)
  - PANIC ATTACK [None]
  - NIGHTMARE [None]
  - ABNORMAL DREAMS [None]
  - SUICIDAL IDEATION [None]
